FAERS Safety Report 5107077-9 (Version None)
Quarter: 2006Q3

REPORT INFORMATION
  Report Type: 
  Country: None (occurrence: None)
  Receive Date: 20060913
  Receipt Date: 20060823
  Transmission Date: 20061208
  Serious: Yes (Death, Other)
  Sender: FDA-Public Use
  Company Number: JP200608005650

PATIENT
  Age: 66 Year
  Sex: Female
  Weight: 36 kg

DRUGS (10)
  1. GEMZAR [Suspect]
     Indication: LUNG ADENOCARCINOMA
     Dosage: 1000 MG/M2, OTHER, INTRAVENOUS
     Route: 042
     Dates: start: 20011001, end: 20011105
  2. VINORELBINE TARTRATE [Concomitant]
  3. DICLOFENAC SODIUM [Concomitant]
  4. NAPROXEN [Concomitant]
  5. FAMOTIDINE [Concomitant]
  6. TEPRENONE (TEPRENONE) [Concomitant]
  7. MAGNESIUM OXIDE (MAGNESIUM OXIDE) [Concomitant]
  8. SENNOSIDE A (SENNOSIDE A) [Concomitant]
  9. TRIAZOLAM [Concomitant]
  10. MORPHINE SULFATE [Concomitant]

REACTIONS (4)
  - BLOOD LACTATE DEHYDROGENASE INCREASED [None]
  - PLEURAL EFFUSION [None]
  - PNEUMONITIS [None]
  - RESPIRATORY FAILURE [None]
